FAERS Safety Report 18467440 (Version 1)
Quarter: 2020Q4

REPORT INFORMATION
  Report Type: Spontaneous
  Country: AU (occurrence: AU)
  Receive Date: 20201105
  Receipt Date: 20201105
  Transmission Date: 20210114
  Serious: Yes (Other)
  Sender: FDA-Public Use
  Company Number: AU-JNJFOC-20201048920

PATIENT
  Age: 63 Year
  Sex: Male
  Weight: 85 kg

DRUGS (15)
  1. MIDODRINE [Concomitant]
     Active Substance: MIDODRINE
  2. SPIRONOLACTONE. [Concomitant]
     Active Substance: SPIRONOLACTONE
  3. HEPARIN [Concomitant]
     Active Substance: HEPARIN SODIUM
     Route: 058
  4. BUMETANIDE. [Concomitant]
     Active Substance: BUMETANIDE
  5. IPRATROPIUM [Concomitant]
     Active Substance: IPRATROPIUM
     Route: 055
  6. BREO ELLIPTA [Concomitant]
     Active Substance: FLUTICASONE FUROATE\VILANTEROL TRIFENATATE
  7. FAMOTIDINE. [Concomitant]
     Active Substance: FAMOTIDINE
  8. DARBEPOETIN ALFA [Concomitant]
     Active Substance: DARBEPOETIN ALFA
     Route: 058
  9. VELETRI [Suspect]
     Active Substance: EPOPROSTENOL
     Indication: PULMONARY ARTERIAL HYPERTENSION
     Route: 042
  10. SILDENAFIL. [Suspect]
     Active Substance: SILDENAFIL
     Indication: PULMONARY ARTERIAL HYPERTENSION
     Route: 065
  11. FUROSEMIDE. [Suspect]
     Active Substance: FUROSEMIDE
     Indication: PRODUCT USED FOR UNKNOWN INDICATION
     Route: 065
  12. OPSUMIT [Concomitant]
     Active Substance: MACITENTAN
     Indication: PULMONARY ARTERIAL HYPERTENSION
  13. SALBUTAMOL [Concomitant]
     Active Substance: ALBUTEROL
     Route: 055
  14. MULTIVITAMINS W/MINERALS [Concomitant]
     Active Substance: MINERALS\VITAMINS
  15. DERMEZE [Concomitant]
     Active Substance: MINERAL OIL\PETROLATUM
     Route: 061

REACTIONS (1)
  - Lichenoid keratosis [Recovering/Resolving]
